FAERS Safety Report 8727671 (Version 5)
Quarter: 2012Q4

REPORT INFORMATION
  Report Type: 
  Country: US (occurrence: US)
  Receive Date: 20120816
  Receipt Date: 20121019
  Transmission Date: 20130627
  Serious: No
  Sender: FDA-Public Use
  Company Number: US-PFIZER INC-2012199661

PATIENT
  Sex: Female

DRUGS (1)
  1. RAMIPRIL [Suspect]
     Indication: HYPERTENSION
     Dosage: 2.5 mg, UNK

REACTIONS (5)
  - Palpitations [Unknown]
  - Hypoaesthesia [Unknown]
  - Drug effect incomplete [Unknown]
  - Paraesthesia [Unknown]
  - Hyperventilation [Unknown]
